FAERS Safety Report 4417361-X (Version None)
Quarter: 2004Q3

REPORT INFORMATION
  Report Type: 
  Country: None (occurrence: None)
  Receive Date: 20040802
  Receipt Date: 20040723
  Transmission Date: 20050211
  Serious: Yes (Hospitalization)
  Sender: FDA-Public Use
  Company Number: 2004224982US

PATIENT
  Age: 52 Year
  Sex: Male

DRUGS (3)
  1. CAMPTOSAR [Suspect]
     Indication: NON-SMALL CELL LUNG CANCER
     Dosage: 100 MG/M2, D1, D8 Q 21 DAYS, IV; SEE IMAGE
     Route: 042
     Dates: start: 20040712, end: 20040712
  2. COMPARATOR-GEMCITABINE(GEMCITABINE) INJECTION [Suspect]
     Indication: NON-SMALL CELL LUNG CANCER
     Dosage: 1000 MG/M2, D1, D8 Q21 DAYS, IV
     Route: 042
     Dates: start: 20040712, end: 20040712
  3. GLUCOPHAGE [Suspect]
     Dates: start: 20040101, end: 20040719

REACTIONS (5)
  - BLOOD PRESSURE INCREASED [None]
  - DISORIENTATION [None]
  - DRUG INTERACTION [None]
  - FALL [None]
  - TREATMENT NONCOMPLIANCE [None]
